FAERS Safety Report 12732410 (Version 2)
Quarter: 2017Q1

REPORT INFORMATION
  Report Type: Spontaneous
  Country: US (occurrence: US)
  Receive Date: 20160912
  Receipt Date: 20170303
  Transmission Date: 20170428
  Serious: Yes (Hospitalization)
  Sender: FDA-Public Use
  Company Number: US-JNJFOC-20160700242

PATIENT
  Age: 78 Year
  Sex: Female

DRUGS (3)
  1. XARELTO [Suspect]
     Active Substance: RIVAROXABAN
     Indication: CEREBROVASCULAR ACCIDENT PROPHYLAXIS
     Dosage: 20 AND 25 MG DOSAGE WERE MENTIONED IN SOURCE DOCUMENT.
     Route: 048
     Dates: start: 20150928, end: 20151029
  2. XARELTO [Suspect]
     Active Substance: RIVAROXABAN
     Indication: THROMBOSIS PROPHYLAXIS
     Dosage: 20 AND 25 MG DOSAGE WERE MENTIONED IN SOURCE DOCUMENT.
     Route: 048
     Dates: start: 20150928, end: 20151029
  3. XARELTO [Suspect]
     Active Substance: RIVAROXABAN
     Indication: ATRIAL FIBRILLATION
     Dosage: 20 AND 25 MG DOSAGE WERE MENTIONED IN SOURCE DOCUMENT.
     Route: 048
     Dates: start: 20150928, end: 20151029

REACTIONS (3)
  - Gastrointestinal haemorrhage [Recovered/Resolved]
  - Incorrect dose administered [Unknown]
  - Off label use [Unknown]

NARRATIVE: CASE EVENT DATE: 20150928
